FAERS Safety Report 6709301-5 (Version None)
Quarter: 2010Q2

REPORT INFORMATION
  Report Type: 
  Country: None (occurrence: None)
  Receive Date: 20100504
  Receipt Date: 20100427
  Transmission Date: 20101027
  Serious: Yes (Death, Other)
  Sender: FDA-Public Use
  Company Number: BR-BAYER-201013221LA

PATIENT
  Age: 60 Year
  Sex: Male

DRUGS (2)
  1. NEXAVAR [Suspect]
     Indication: HEPATIC NEOPLASM MALIGNANT
     Route: 065
     Dates: start: 20080520, end: 20080101
  2. NEXAVAR [Suspect]
     Route: 065
     Dates: start: 20080101, end: 20080810

REACTIONS (2)
  - DIARRHOEA [None]
  - HEPATIC NEOPLASM MALIGNANT [None]
